FAERS Safety Report 13012870 (Version 2)
Quarter: 2017Q1

REPORT INFORMATION
  Report Type: Spontaneous
  Country: US (occurrence: US)
  Receive Date: 20161209
  Receipt Date: 20170113
  Transmission Date: 20170428
  Serious: Yes (Hospitalization)
  Sender: FDA-Public Use
  Company Number: US-SAOL THERAPEUTICS-2016SAO01182

PATIENT
  Age: 32 Year
  Sex: Female

DRUGS (1)
  1. LIORESAL [Suspect]
     Active Substance: BACLOFEN
     Dosage: 140 ?G, \DAY
     Route: 037

REACTIONS (3)
  - Implant site extravasation [Unknown]
  - Muscle spasticity [Unknown]
  - Tachycardia [Unknown]

NARRATIVE: CASE EVENT DATE: 20161130
